FAERS Safety Report 10452753 (Version 1)
Quarter: 2014Q3

REPORT INFORMATION
  Report Type: Spontaneous
  Country: US (occurrence: None)
  Receive Date: 20140912
  Receipt Date: 20140912
  Transmission Date: 20150326
  Serious: Yes (Other)
  Sender: FDA-Public Use
  Company Number: None

PATIENT
  Age: 42 Year
  Sex: Male

DRUGS (6)
  1. SOVALDI [Suspect]
     Active Substance: SOFOSBUVIR
     Indication: CHRONIC HEPATITIS C
     Route: 048
  2. RIBASPHERE RIBAPAK [Suspect]
     Active Substance: RIBAVIRIN
     Indication: HEPATITIS
     Dosage: ONCE TABLET, TWICE DAILY, ORAL
     Route: 048
  3. QUETIAPINE [Concomitant]
     Active Substance: QUETIAPINE
  4. DULOXETINE [Concomitant]
     Active Substance: DULOXETINE
  5. ACYCLOVIR. [Concomitant]
     Active Substance: ACYCLOVIR
  6. PAROXETINE [Concomitant]
     Active Substance: PAROXETINE\PAROXETINE HYDROCHLORIDE

REACTIONS (6)
  - Insomnia [None]
  - Nausea [None]
  - Rash [None]
  - Depression [None]
  - Dysgeusia [None]
  - Irritability [None]

NARRATIVE: CASE EVENT DATE: 20140910
